FAERS Safety Report 18420308 (Version 1)
Quarter: 2020Q4

REPORT INFORMATION
  Report Type: Spontaneous
  Country: FR (occurrence: FR)
  Receive Date: 20201023
  Receipt Date: 20201023
  Transmission Date: 20210114
  Serious: Yes (Other)
  Sender: FDA-Public Use
  Company Number: NVSC2020FR281478

PATIENT
  Age: 63 Year
  Sex: Female
  Weight: 58 kg

DRUGS (8)
  1. ENDOXAN [Suspect]
     Active Substance: CYCLOPHOSPHAMIDE
     Indication: PLASMA CELL MYELOMA
     Dosage: 400 MG, QW
     Route: 048
     Dates: start: 20200520, end: 20200909
  2. KYPROLIS [Suspect]
     Active Substance: CARFILZOMIB
     Indication: PLASMA CELL MYELOMA
     Dosage: 70 MG/M2, QW
     Route: 042
     Dates: start: 20200520, end: 20200909
  3. ZOMETA [Suspect]
     Active Substance: ZOLEDRONIC ACID
     Indication: PROPHYLAXIS
     Dosage: 1 DF, QMO
     Route: 065
     Dates: start: 201906
  4. DEXAMETHASONE SODIUM PHOSPHATE. [Suspect]
     Active Substance: DEXAMETHASONE SODIUM PHOSPHATE
     Indication: PLASMA CELL MYELOMA
     Dosage: 1 DF, QW
     Route: 042
     Dates: start: 20200520, end: 20200909
  5. CLAMOXYL (AMOXICILLIN TRIHYDRATE) [Suspect]
     Active Substance: AMOXICILLIN
     Indication: PROPHYLAXIS
     Dosage: UNK
     Route: 048
  6. HEXALYSE [BICLOTYMOL\DEQUALINIUM CHLORIDE\ENOXOLONE\LYSOZYME\PAPAIN] [Suspect]
     Active Substance: BICLOTYMOL\DEQUALINIUM CHLORIDE\ENOXOLONE\LYSOZYME\PAPAIN
     Indication: NASOPHARYNGITIS
     Dosage: UNK
     Route: 065
     Dates: start: 202009, end: 202009
  7. FLUIMUCIL [Suspect]
     Active Substance: ACETYLCYSTEINE
     Indication: NASOPHARYNGITIS
     Dosage: UNK
     Route: 065
     Dates: start: 202009, end: 202009
  8. ZELITREX [Suspect]
     Active Substance: VALACYCLOVIR HYDROCHLORIDE
     Indication: PROPHYLAXIS
     Dosage: UNK
     Route: 048

REACTIONS (1)
  - Deafness neurosensory [Recovering/Resolving]

NARRATIVE: CASE EVENT DATE: 20200913
